FAERS Safety Report 8686803 (Version 2)
Quarter: 2013Q4

REPORT INFORMATION
  Report Type: Spontaneous
  Country: CH (occurrence: CH)
  Receive Date: 20120727
  Receipt Date: 20131101
  Transmission Date: 20140711
  Serious: Yes (Other)
  Sender: FDA-Public Use
  Company Number: CH-009507513-1207CHE000066

PATIENT
  Age: 33 Year
  Sex: Female

DRUGS (1)
  1. REMERON [Suspect]
     Dosage: 14 DF, ONCE
     Route: 048
     Dates: start: 20120608, end: 20120608

REACTIONS (2)
  - Suicide attempt [Recovered/Resolved]
  - Agitation [Recovered/Resolved]
